FAERS Safety Report 5530095-3 (Version None)
Quarter: 2007Q4

REPORT INFORMATION
  Report Type: 
  Country: None (occurrence: None)
  Receive Date: 20071119
  Receipt Date: 20070816
  Transmission Date: 20080405
  Serious: No
  Sender: FDA-Public Use
  Company Number: TPA2007A01810

PATIENT
  Age: 65 Year
  Sex: Male
  Weight: 64.4108 kg

DRUGS (4)
  1. ROZEREM [Suspect]
     Dosage: PER ORAL
     Route: 048
  2. BUSPAR [Concomitant]
  3. ATIVAN [Concomitant]
  4. KLONOPIN [Concomitant]

REACTIONS (1)
  - DRUG INEFFECTIVE [None]
